FAERS Safety Report 6386898-9 (Version None)
Quarter: 2009Q4

REPORT INFORMATION
  Report Type: 
  Country: None (occurrence: None)
  Receive Date: 20091002
  Receipt Date: 20090921
  Transmission Date: 20100525
  Serious: Yes (Hospitalization, Other)
  Sender: FDA-Public Use
  Company Number: US-PFIZER INC-2009248340

PATIENT
  Sex: Female

DRUGS (5)
  1. GEODON [Suspect]
     Indication: MAJOR DEPRESSION
     Dosage: 80MG IN AM, 120MG IN PM
     Route: 048
     Dates: start: 20080328
  2. RISPERDAL [Suspect]
  3. ATIVAN [Suspect]
  4. CELEXA [Concomitant]
     Dates: start: 20080328, end: 20080516
  5. LISINOPRIL [Concomitant]

REACTIONS (7)
  - AGGRESSION [None]
  - COMMUNICATION DISORDER [None]
  - DRUG INEFFECTIVE [None]
  - NEUROLEPTIC MALIGNANT SYNDROME [None]
  - PARANOIA [None]
  - SCHIZOAFFECTIVE DISORDER [None]
  - UNRESPONSIVE TO STIMULI [None]
